FAERS Safety Report 9260354 (Version 1)
Quarter: 2013Q2

REPORT INFORMATION
  Report Type: Report from Study
  Country: MX (occurrence: MX)
  Receive Date: 20130429
  Receipt Date: 20130429
  Transmission Date: 20140414
  Serious: Yes (Other)
  Sender: FDA-Public Use
  Company Number: PHHY2013MX041487

PATIENT
  Age: 69 Year
  Sex: Male

DRUGS (4)
  1. EXELON PATCH [Suspect]
     Indication: PARKINSON^S DISEASE
     Dosage: 4.6 MG (PATCH 5CM2), DAILY
     Route: 062
     Dates: end: 201205
  2. LEVODOPA [Concomitant]
     Indication: PARKINSON^S DISEASE
     Dosage: UNK UKN, UNK
     Dates: start: 2009
  3. ENALAPRIL [Concomitant]
     Indication: BLOOD PRESSURE ABNORMAL
     Dosage: UNK UKN, UNK
     Dates: start: 2003
  4. MEMANTINE [Concomitant]
     Indication: PARKINSON^S DISEASE
     Dosage: UNK UKN, UNK

REACTIONS (2)
  - Upper limb fracture [Recovered/Resolved]
  - Fall [Recovered/Resolved]
